FAERS Safety Report 5064305-6 (Version None)
Quarter: 2006Q3

REPORT INFORMATION
  Report Type: 
  Country: None (occurrence: None)
  Receive Date: 20060706
  Receipt Date: 20060313
  Transmission Date: 20061208
  Serious: No
  Sender: FDA-Public Use
  Company Number: 200610213BWH

PATIENT
  Age: 82 Year
  Sex: Male

DRUGS (3)
  1. LEVITRA [Suspect]
     Indication: ERECTILE DYSFUNCTION
     Dosage: 10 MG, ONCE, ORAL; SEE IMAGE
     Route: 048
     Dates: start: 20060101
  2. LEVITRA [Suspect]
     Indication: ERECTILE DYSFUNCTION
     Dosage: 10 MG, ONCE, ORAL; SEE IMAGE
     Route: 048
     Dates: start: 20060101
  3. LEVITRA [Suspect]
     Indication: ERECTILE DYSFUNCTION
     Dosage: 10 MG, ONCE, ORAL; SEE IMAGE
     Route: 048
     Dates: start: 20060106

REACTIONS (1)
  - ERECTILE DYSFUNCTION [None]
